FAERS Safety Report 4718574-X (Version None)
Quarter: 2005Q3

REPORT INFORMATION
  Report Type: 
  Country: None (occurrence: None)
  Receive Date: 20050719
  Receipt Date: 20050331
  Transmission Date: 20060218
  Serious: Yes (Hospitalization, Other)
  Sender: FDA-Public Use
  Company Number: 2005040657

PATIENT
  Sex: Female

DRUGS (7)
  1. CELEBREX [Suspect]
     Indication: OSTEOARTHRITIS
     Dosage: (200 MG, UNKNOWN), ORAL
     Route: 048
     Dates: start: 20050105, end: 20050223
  2. LOTREL [Concomitant]
  3. ACETYLSLICYLIC ACID (ACETYLSALICYLIC ACID) [Concomitant]
  4. CALCIUM (CALCIUM) [Concomitant]
  5. ALENDRONATE SODIUM [Concomitant]
  6. SIMVASTATIN [Concomitant]
  7. FUROSEMIDE [Concomitant]

REACTIONS (1)
  - DERMATITIS EXFOLIATIVE [None]
